FAERS Safety Report 18244709 (Version 1)
Quarter: 2020Q3

REPORT INFORMATION
  Report Type: Spontaneous
  Country: US (occurrence: US)
  Receive Date: 20200909
  Receipt Date: 20200909
  Transmission Date: 20201103
  Serious: No
  Sender: FDA-Public Use
  Company Number: US-HTU-2020US020897

PATIENT
  Sex: Male

DRUGS (1)
  1. VALCHLOR [Suspect]
     Active Substance: MECHLORETHAMINE
     Indication: CUTANEOUS T-CELL LYMPHOMA
     Dosage: UNK, 3/WEEK
     Route: 061
     Dates: start: 2019

REACTIONS (6)
  - Off label use [Unknown]
  - Application site vesicles [Recovered/Resolved]
  - Hypersensitivity [Recovered/Resolved]
  - Application site bruise [Recovered/Resolved]
  - Application site urticaria [Recovered/Resolved]
  - Application site pain [Recovered/Resolved]
